FAERS Safety Report 4384841-5 (Version None)
Quarter: 2004Q2

REPORT INFORMATION
  Report Type: 
  Country: None (occurrence: None)
  Receive Date: 20040617
  Receipt Date: 20040601
  Transmission Date: 20050107
  Serious: Yes (Hospitalization)
  Sender: FDA-Public Use
  Company Number: 601286

PATIENT
  Age: 51 Year
  Sex: Female
  Weight: 77.1115 kg

DRUGS (2)
  1. GAMMAGARD S/D [Suspect]
     Indication: MULTIPLE SCLEROSIS
     Dosage: 30 GM; PRN; INTRAVENOUS
     Route: 042
     Dates: start: 20040510, end: 20040514
  2. COPAXONE [Concomitant]

REACTIONS (6)
  - ALANINE AMINOTRANSFERASE INCREASED [None]
  - BLOOD ALKALINE PHOSPHATASE INCREASED [None]
  - GAMMA-GLUTAMYLTRANSFERASE INCREASED [None]
  - LEUKOPENIA [None]
  - PYREXIA [None]
  - VIRAL INFECTION [None]
